FAERS Safety Report 5194978-9 (Version None)
Quarter: 2006Q4

REPORT INFORMATION
  Report Type: 
  Country: None (occurrence: None)
  Receive Date: 20061229
  Receipt Date: 20061215
  Transmission Date: 20070319
  Serious: Yes (Hospitalization)
  Sender: FDA-Public Use
  Company Number: CH-BAYER-200616372GDS

PATIENT
  Age: 76 Year
  Sex: Male

DRUGS (3)
  1. ASPIRIN [Suspect]
     Indication: STENT PLACEMENT
     Route: 048
     Dates: end: 20060426
  2. PLAVIX [Suspect]
     Indication: STENT PLACEMENT
     Route: 048
     Dates: end: 20060426
  3. SINTROM [Suspect]
     Indication: ATRIAL FIBRILLATION
     Route: 048
     Dates: end: 20060426

REACTIONS (3)
  - ANAEMIA [None]
  - GASTROINTESTINAL HAEMORRHAGE [None]
  - PROTHROMBIN TIME PROLONGED [None]
